FAERS Safety Report 6829176-3 (Version None)
Quarter: 2010Q3

REPORT INFORMATION
  Report Type: 
  Country: None (occurrence: None)
  Receive Date: 20100709
  Receipt Date: 20070306
  Transmission Date: 20110219
  Serious: No
  Sender: FDA-Public Use
  Company Number: US-PFIZER INC-2007018504

PATIENT
  Sex: Male
  Weight: 86.18 kg

DRUGS (4)
  1. CHANTIX [Suspect]
     Indication: SMOKING CESSATION THERAPY
     Dates: start: 20070201
  2. SPIRIVA [Suspect]
     Indication: CHRONIC OBSTRUCTIVE PULMONARY DISEASE
     Dates: end: 20070301
  3. ANTIBIOTICS [Suspect]
     Indication: ABDOMINAL PAIN UPPER
     Dates: start: 20070201, end: 20070301
  4. VITAMINS [Suspect]
     Dates: end: 20070301

REACTIONS (2)
  - CHEST PAIN [None]
  - FLATULENCE [None]
